FAERS Safety Report 15643915 (Version 1)
Quarter: 2018Q4

REPORT INFORMATION
  Report Type: Spontaneous
  Country: RU (occurrence: RU)
  Receive Date: 20181121
  Receipt Date: 20181121
  Transmission Date: 20190205
  Serious: Yes (Other)
  Sender: FDA-Public Use
  Company Number: RU-SA-2018SA314207

PATIENT
  Sex: Female
  Weight: 55 kg

DRUGS (1)
  1. TOUJEO [Suspect]
     Active Substance: INSULIN GLARGINE
     Dosage: 18 IU, UNK
     Route: 065

REACTIONS (4)
  - Urticaria [Recovered/Resolved]
  - Hyperaemia [Recovered/Resolved]
  - Angioedema [Recovered/Resolved]
  - Injection site pruritus [Recovered/Resolved]

NARRATIVE: CASE EVENT DATE: 20180418
